FAERS Safety Report 23740774 (Version 1)
Quarter: 2024Q2

REPORT INFORMATION
  Report Type: Report from Study
  Country: US (occurrence: US)
  Receive Date: 20240415
  Receipt Date: 20240415
  Transmission Date: 20240716
  Serious: Yes (Other)
  Sender: FDA-Public Use
  Company Number: US-ABBVIE-5718615

PATIENT
  Sex: Male

DRUGS (1)
  1. LUPRON [Suspect]
     Active Substance: LEUPROLIDE ACETATE
     Indication: Product used for unknown indication
     Route: 065
     Dates: start: 20231227

REACTIONS (6)
  - Prostate cancer [Unknown]
  - Pollakiuria [Unknown]
  - Hot flush [Unknown]
  - Urinary retention [Unknown]
  - Night sweats [Unknown]
  - Weight increased [Unknown]
